FAERS Safety Report 9321729 (Version 1)
Quarter: 2013Q2

REPORT INFORMATION
  Report Type: Spontaneous
  Country: IT (occurrence: None)
  Receive Date: 20130529
  Receipt Date: 20130529
  Transmission Date: 20140414
  Serious: Yes (Other)
  Sender: FDA-Public Use
  Company Number: AUR-APL-2013-04306

PATIENT
  Sex: Female

DRUGS (1)
  1. LEVOFLOXACIN (LEVOFLOXACIN) [Suspect]
     Indication: PRODUCT USED FOR UNKNOWN INDICATION

REACTIONS (3)
  - Erythema [None]
  - Orbital oedema [None]
  - Throat tightness [None]
